FAERS Safety Report 23635678 (Version 1)
Quarter: 2024Q1

REPORT INFORMATION
  Report Type: Report from Study
  Country: US (occurrence: US)
  Receive Date: 20240315
  Receipt Date: 20240315
  Transmission Date: 20240410
  Serious: Yes (Hospitalization, Other)
  Sender: FDA-Public Use
  Company Number: US-002147023-NVSC2023US263808

PATIENT
  Age: 57 Year
  Sex: Female

DRUGS (1)
  1. KESIMPTA [Suspect]
     Active Substance: OFATUMUMAB
     Indication: Multiple sclerosis
     Dosage: UNK
     Route: 065

REACTIONS (5)
  - Concussion [Unknown]
  - Memory impairment [Unknown]
  - Parkinson^s disease [Unknown]
  - Multiple sclerosis relapse [Unknown]
  - Headache [Unknown]

NARRATIVE: CASE EVENT DATE: 20231001
